FAERS Safety Report 9459953 (Version 1)
Quarter: 2013Q3

REPORT INFORMATION
  Report Type: Spontaneous
  Country: FR (occurrence: FR)
  Receive Date: 20130815
  Receipt Date: 20130815
  Transmission Date: 20140515
  Serious: Yes (Hospitalization, Other)
  Sender: FDA-Public Use
  Company Number: FR-EISAI INC-E2090-02796-SPO-FR

PATIENT
  Sex: 0

DRUGS (3)
  1. ZONISAMIDE [Suspect]
     Indication: PARTIAL SEIZURES
     Dosage: UNKNOWN
     Route: 048
  2. LEVETIRACETAM [Concomitant]
     Indication: PARTIAL SEIZURES
     Dosage: UNKNOWN
     Route: 065
  3. VALPROATE [Concomitant]
     Indication: PARTIAL SEIZURES
     Dosage: UNKNOWN
     Route: 065

REACTIONS (2)
  - Delirium [Unknown]
  - Psychotic disorder [Unknown]
